FAERS Safety Report 15300440 (Version 1)
Quarter: 2018Q3

REPORT INFORMATION
  Report Type: Spontaneous
  Country: US (occurrence: US)
  Receive Date: 20180808
  Receipt Date: 20180808
  Transmission Date: 20181010
  Serious: Yes (Life-Threatening, Hospitalization, Disabling, Congenital Anomaly)
  Sender: FDA-Public Use
  Company Number: None

PATIENT
  Age: 0 Day
  Sex: Male
  Weight: 15.75 kg

DRUGS (9)
  1. VITAMIN D3 [Concomitant]
     Active Substance: CHOLECALCIFEROL
  2. CALICUM CARBONATE [Concomitant]
  3. PULSE OXIMETER [Concomitant]
  4. ASPRIN [Concomitant]
     Active Substance: ASPIRIN
  5. ZANTAC [Concomitant]
     Active Substance: RANITIDINE HYDROCHLORIDE
  6. ERYPED [Concomitant]
     Active Substance: ERYTHROMYCIN ETHYLSUCCINATE
  7. ZOFRAN [Suspect]
     Active Substance: ONDANSETRON HYDROCHLORIDE
     Indication: VOMITING IN PREGNANCY
     Dosage: ?          QUANTITY:1 AS NEEDED (PRN);?
     Route: 048
  8. FEEDING PUMP [Concomitant]
  9. MIRALAX [Concomitant]
     Active Substance: POLYETHYLENE GLYCOL 3350

REACTIONS (6)
  - Anal atresia [None]
  - VACTERL syndrome [None]
  - Fallot^s tetralogy [None]
  - Limb reduction defect [None]
  - Umbilical cord vascular disorder [None]
  - Foetal exposure during pregnancy [None]

NARRATIVE: CASE EVENT DATE: 20140821
